FAERS Safety Report 5094281-1 (Version None)
Quarter: 2006Q3

REPORT INFORMATION
  Report Type: 
  Country: None (occurrence: None)
  Receive Date: 20060830
  Receipt Date: 20060830
  Transmission Date: 20061208
  Serious: Yes (Life-Threatening)
  Sender: FDA-Public Use
  Company Number: None

PATIENT
  Sex: Male
  Weight: 81 kg

DRUGS (6)
  1. CEFTRIAXONE [Suspect]
     Indication: URINARY TRACT INFECTION
     Dosage: 1 GRAM STAT IM [ ONE DOSE]
     Route: 042
  2. DIAZEPAM [Concomitant]
  3. VICODIN [Concomitant]
  4. SENNA LAXATIVE [Concomitant]
  5. BACLOFEN [Concomitant]
  6. TAMSULOSIN HCL [Concomitant]

REACTIONS (4)
  - ASTHMA [None]
  - BRADYCARDIA [None]
  - LARYNGEAL OEDEMA [None]
  - SHOCK [None]
